FAERS Safety Report 8841355 (Version 3)
Quarter: 2013Q1

REPORT INFORMATION
  Report Type: Spontaneous
  Country: US (occurrence: US)
  Receive Date: 20121015
  Receipt Date: 20130315
  Transmission Date: 20140127
  Serious: Yes (Congenital Anomaly, Other)
  Sender: FDA-Public Use
  Company Number: US-PFIZER INC-2012252794

PATIENT
  Sex: Female
  Weight: 3.3 kg

DRUGS (5)
  1. ZOLOFT [Suspect]
     Indication: DEPRESSION
     Dosage: 50 MG AND 100 MG
     Route: 064
     Dates: start: 200801, end: 201012
  2. PRENATAL VITAMINS [Concomitant]
     Dosage: 25 MG
     Route: 064
  3. AMBIEN [Concomitant]
     Dosage: 10 MG, UNK
     Route: 064
  4. SERTRALINE [Concomitant]
     Dosage: 25 MG
     Route: 064
     Dates: start: 20080107
  5. SERTRALINE [Concomitant]
     Dosage: 50 MG
     Dates: start: 20080128, end: 20090422

REACTIONS (6)
  - Maternal exposure timing unspecified [Unknown]
  - Ventricular septal defect [Unknown]
  - Neonatal respiratory distress syndrome [Recovered/Resolved]
  - Cardiac failure congestive [Unknown]
  - Laryngomalacia [Recovering/Resolving]
  - Atrial septal defect [Unknown]
